FAERS Safety Report 11701436 (Version 8)
Quarter: 2017Q3

REPORT INFORMATION
  Report Type: Spontaneous
  Country: US (occurrence: US)
  Receive Date: 20151105
  Receipt Date: 20170721
  Transmission Date: 20171127
  Serious: Yes (Other)
  Sender: FDA-Public Use
  Company Number: PHEH2015US022450

PATIENT
  Age: 27 Year
  Sex: Female

DRUGS (2)
  1. ZOFRAN [Suspect]
     Active Substance: ONDANSETRON HYDROCHLORIDE
     Indication: VOMITING IN PREGNANCY
     Dosage: 04 MG, Q8H
     Route: 048
  2. ONDANSETRON DR REDDY [Suspect]
     Active Substance: ONDANSETRON
     Indication: VOMITING IN PREGNANCY
     Dosage: 1 DF, Q8H
     Route: 048
     Dates: start: 20130927, end: 20140331

REACTIONS (8)
  - Pain [Unknown]
  - Product use in unapproved indication [Unknown]
  - Premature rupture of membranes [Unknown]
  - Emotional distress [Unknown]
  - Premature delivery [Unknown]
  - Injury [Unknown]
  - Maternal exposure during pregnancy [Unknown]
  - Anxiety [Unknown]

NARRATIVE: CASE EVENT DATE: 20140401
